FAERS Safety Report 22345547 (Version 3)
Quarter: 2023Q2

REPORT INFORMATION
  Report Type: Report from Study
  Country: US (occurrence: US)
  Receive Date: 20230519
  Receipt Date: 20230606
  Transmission Date: 20230721
  Serious: No
  Sender: FDA-Public Use
  Company Number: US-BAUSCH-BL-2022-008329

PATIENT
  Age: 68 Year
  Sex: Female

DRUGS (21)
  1. XIFAXAN [Suspect]
     Active Substance: RIFAXIMIN
     Indication: Product used for unknown indication
     Route: 048
     Dates: start: 20210409, end: 202305
  2. ESTRACE [Concomitant]
     Active Substance: ESTRADIOL
     Indication: Product used for unknown indication
     Dosage: 0.1 INSERT 1 G VAGINALLY TWICE WEEKLY
     Route: 067
     Dates: start: 20210330
  3. FERROUS SULFATE [Concomitant]
     Active Substance: FERROUS SULFATE
     Indication: Product used for unknown indication
     Dosage: 65 MG IRON
     Route: 048
     Dates: start: 20180129
  4. NEURONTIN [Concomitant]
     Active Substance: GABAPENTIN
     Indication: Product used for unknown indication
     Route: 048
     Dates: start: 20170830
  5. ZESTRIL [Concomitant]
     Active Substance: LISINOPRIL
     Indication: Product used for unknown indication
     Route: 048
     Dates: start: 20170104
  6. ZESTRIL [Concomitant]
     Active Substance: LISINOPRIL
     Route: 048
  7. HYDROCHLOROTHIAZIDE;METOPROLOL SUCCINATE [Concomitant]
     Indication: Product used for unknown indication
     Dosage: ;METOPROLOL SU-HYDROCHLOROTHIAZ, 25-12.5 MG
     Route: 048
  8. PRILOSEC [Concomitant]
     Active Substance: OMEPRAZOLE MAGNESIUM
     Indication: Product used for unknown indication
     Dosage: DAILY BEFORE BREAKFAST, DO NOT CHEW, CRUSH OR OPEN CAPSULE
     Route: 048
  9. PRAVACHOL [Concomitant]
     Active Substance: PRAVASTATIN SODIUM
     Indication: Product used for unknown indication
     Dosage: 10 MG AT BEDTIME
     Route: 048
     Dates: start: 20210202
  10. SPIRIVA [Concomitant]
     Active Substance: TIOTROPIUM BROMIDE MONOHYDRATE
     Indication: Product used for unknown indication
     Dosage: INHAL 18 MCG IN LUNGS DAILY
     Route: 055
     Dates: start: 20210201
  11. NORCO [Concomitant]
     Active Substance: ACETAMINOPHEN\HYDROCODONE BITARTRATE
     Indication: Pain
     Dosage: 10-325 MG TABLET, AS NEEDED, MAX. 3000 MG PARACETAMOL / 24 HOURS FOR 14 DAYS
     Route: 048
     Dates: start: 20190117
  12. LACTULOSE [Concomitant]
     Active Substance: LACTULOSE
     Indication: Product used for unknown indication
  13. PRINIVIL [Concomitant]
     Active Substance: LISINOPRIL
     Indication: Product used for unknown indication
     Route: 048
     Dates: start: 20170104
  14. PRINIVIL [Concomitant]
     Active Substance: LISINOPRIL
     Route: 048
  15. COREG [Concomitant]
     Active Substance: CARVEDILOL
     Indication: Varices oesophageal
     Dosage: WITH BREAKFAST AND DINNER
     Route: 048
     Dates: start: 20210616
  16. PROAIR HFA [Concomitant]
     Active Substance: ALBUTEROL SULFATE
     Indication: Product used for unknown indication
     Dosage: 90 MCG/ACTUATION AEROSOL INHALER?INHALE 2 PUFFS IN LUNGS
     Route: 055
  17. PROVENTIL [Concomitant]
     Active Substance: ALBUTEROL
     Indication: Product used for unknown indication
     Dosage: 90 MCG/ACTUATION AEROSOL INHALER?INHALE 2 PUFFS IN LUNGS
     Route: 055
  18. VENTOLIN HFA [Concomitant]
     Active Substance: ALBUTEROL SULFATE
     Indication: Product used for unknown indication
     Dosage: 90 MCG/ACTUATION AEROSOL INHALER?INHALE 2 PUFFS IN LUNGS
     Route: 055
  19. COENZYME Q10 [Concomitant]
     Active Substance: DIETARY SUPPLEMENT\UBIDECARENONE
     Indication: Product used for unknown indication
     Route: 048
  20. INCRUSE ELLIPTA [Concomitant]
     Active Substance: UMECLIDINIUM BROMIDE
     Indication: Product used for unknown indication
     Dosage: 62.6 MCG/ACTUATION INHALER?INHALE ONE PUFF BY MOUTH EVERY DAY
     Route: 055
  21. AMOXIL [Concomitant]
     Active Substance: AMOXICILLIN
     Indication: Product used for unknown indication
     Route: 048

REACTIONS (11)
  - Hypoacusis [Unknown]
  - Memory impairment [Unknown]
  - Confusional state [Unknown]
  - Tinnitus [Unknown]
  - Abdominal discomfort [Unknown]
  - Weight increased [Unknown]
  - Decreased appetite [Unknown]
  - Dizziness [Unknown]
  - Dyspnoea [Unknown]
  - Headache [Unknown]
  - Product use issue [Unknown]

NARRATIVE: CASE EVENT DATE: 20230501
